FAERS Safety Report 7756819-2 (Version None)
Quarter: 2011Q3

REPORT INFORMATION
  Report Type: 
  Country: None (occurrence: None)
  Receive Date: 20110916
  Receipt Date: 20110908
  Transmission Date: 20111222
  Serious: Yes (Hospitalization, Other)
  Sender: FDA-Public Use
  Company Number: PHHY2011FR75119

PATIENT
  Age: 21 Year
  Sex: Female

DRUGS (2)
  1. METHADONE HCL [Suspect]
     Dosage: 40 MG, 2 DF
  2. METHADONE HCL [Suspect]
     Dosage: 40 MG, EVERY WEEK
     Route: 048

REACTIONS (13)
  - PRODUCTIVE COUGH [None]
  - DRUG ABUSE [None]
  - MIOSIS [None]
  - ACUTE PULMONARY OEDEMA [None]
  - PYREXIA [None]
  - STAPHYLOCOCCAL BACTERAEMIA [None]
  - OXYGEN SATURATION DECREASED [None]
  - RESPIRATORY ACIDOSIS [None]
  - ACUTE RESPIRATORY DISTRESS SYNDROME [None]
  - TACHYPNOEA [None]
  - ESCHAR [None]
  - NON-CARDIOGENIC PULMONARY OEDEMA [None]
  - ALTERED STATE OF CONSCIOUSNESS [None]
